FAERS Safety Report 5737464-7 (Version None)
Quarter: 2008Q2

REPORT INFORMATION
  Report Type: 
  Country: None (occurrence: None)
  Receive Date: 20080514
  Receipt Date: 20080403
  Transmission Date: 20081010
  Serious: No
  Sender: FDA-Public Use
  Company Number: US-BRISTOL-MYERS SQUIBB COMPANY-14137673

PATIENT
  Age: 50 Year
  Sex: Female

DRUGS (1)
  1. IXEMPRA KIT [Suspect]

REACTIONS (6)
  - ARTHRALGIA [None]
  - FATIGUE [None]
  - MYALGIA [None]
  - SKIN EXFOLIATION [None]
  - STOMATITIS [None]
  - VAGINAL ULCERATION [None]
